FAERS Safety Report 7003866-4 (Version None)
Quarter: 2010Q3

REPORT INFORMATION
  Report Type: 
  Country: None (occurrence: None)
  Receive Date: 20100920
  Receipt Date: 20091215
  Transmission Date: 20110219
  Serious: No
  Sender: FDA-Public Use
  Company Number: US-WYE-H12656009

PATIENT
  Sex: Male
  Weight: 88.53 kg

DRUGS (7)
  1. PRISTIQ [Suspect]
     Indication: DEPRESSION
     Route: 048
     Dates: start: 20090801, end: 20091201
  2. PRISTIQ [Suspect]
     Route: 048
     Dates: start: 20091201
  3. CRESTOR [Concomitant]
  4. PLAVIX [Concomitant]
  5. ACETYLSALICYLIC ACID [Concomitant]
  6. CARBIDOPA/ENTACAPONE/LEVODOPA [Concomitant]
  7. METOPROLOL [Concomitant]

REACTIONS (2)
  - DRUG INEFFECTIVE [None]
  - NAUSEA [None]
